FAERS Safety Report 5630373-3 (Version None)
Quarter: 2008Q1

REPORT INFORMATION
  Report Type: 
  Country: None (occurrence: None)
  Receive Date: 20080219
  Receipt Date: 20080208
  Transmission Date: 20080703
  Serious: Yes (Hospitalization)
  Sender: FDA-Public Use
  Company Number: PHEH2008US00598

PATIENT
  Age: 71 Year
  Sex: Female

DRUGS (10)
  1. EXJADE [Suspect]
     Indication: IRON OVERLOAD
     Dosage: 2000 MG, QD
     Route: 048
     Dates: start: 20071205, end: 20071217
  2. ZOMETA [Suspect]
  3. LEVOTHYROXINE SODIUM [Concomitant]
     Indication: HYPOTHYROIDISM
     Dosage: 125 UG, QD
     Route: 048
  4. HYDROCHLOROTHIAZIDE [Concomitant]
     Dosage: 25 MG, QD
     Route: 048
  5. AVAPRO [Concomitant]
     Dosage: 150 MG, QD
     Route: 048
  6. IBUPROFEN [Concomitant]
     Indication: PAIN
     Dosage: 600 MG, TID
     Route: 048
  7. CYCLOBENZAPRINE HCL [Concomitant]
     Dosage: 10 MG, Q8H
     Route: 048
  8. ALLOPURINOL [Concomitant]
     Indication: GOUT
     Dosage: 200 MG, QD
     Route: 048
  9. METFORMIN HCL [Concomitant]
     Indication: DIABETES MELLITUS
     Dosage: 850 MG, BID
     Route: 048
  10. PAXIL [Concomitant]
     Indication: DEPRESSION
     Dosage: 40 MG, QD
     Route: 048

REACTIONS (10)
  - CELLULITIS [None]
  - DIARRHOEA [None]
  - ENDOTRACHEAL INTUBATION [None]
  - LEG AMPUTATION [None]
  - OEDEMA PERIPHERAL [None]
  - PAIN IN EXTREMITY [None]
  - SEPSIS [None]
  - SEPTIC SHOCK [None]
  - STAPHYLOCOCCAL INFECTION [None]
  - WOUND [None]
